FAERS Safety Report 10067738 (Version 1)
Quarter: 2014Q2

REPORT INFORMATION
  Report Type: Spontaneous
  Country: US (occurrence: None)
  Receive Date: 20140401
  Receipt Date: 20140401
  Transmission Date: 20141212
  Serious: Yes (Other)
  Sender: FDA-Public Use
  Company Number: PHEH2013US005650

PATIENT
  Age: 65 Year
  Sex: Male

DRUGS (1)
  1. TASIGNA (AMN107) CAPSULE [Suspect]
     Dates: start: 20130228

REACTIONS (3)
  - Atrial fibrillation [None]
  - Anxiety [None]
  - Palpitations [None]
